FAERS Safety Report 6384026-7 (Version None)
Quarter: 2009Q4

REPORT INFORMATION
  Report Type: 
  Country: None (occurrence: None)
  Receive Date: 20091001
  Receipt Date: 20090602
  Transmission Date: 20100525
  Serious: Yes (Other)
  Sender: FDA-Public Use
  Company Number: US-PFIZER INC-2008008459

PATIENT
  Sex: Male

DRUGS (5)
  1. VIAGRA [Suspect]
     Route: 048
  2. NEURONTIN [Concomitant]
  3. IRON [Concomitant]
  4. ACETYLSALICYLIC ACID [Concomitant]
  5. HEPARIN [Concomitant]

REACTIONS (3)
  - ANXIETY [None]
  - BLINDNESS [None]
  - OPTIC ISCHAEMIC NEUROPATHY [None]
